FAERS Safety Report 6355964-6 (Version None)
Quarter: 2009Q3

REPORT INFORMATION
  Report Type: 
  Country: None (occurrence: None)
  Receive Date: 20090911
  Receipt Date: 20090911
  Transmission Date: 20100115
  Serious: Yes (Other)
  Sender: FDA-Public Use
  Company Number: None

PATIENT
  Sex: Female
  Weight: 113.3993 kg

DRUGS (2)
  1. NEXIUM [Suspect]
     Indication: GASTROINTESTINAL DISORDER
     Dosage: 40 MG 1 X DAY
     Dates: start: 20090820
  2. NEXIUM [Suspect]
     Indication: GASTROINTESTINAL DISORDER
     Dosage: 40 MG 1 X DAY
     Dates: start: 20090821

REACTIONS (7)
  - CHILLS [None]
  - DYSPHONIA [None]
  - FLATULENCE [None]
  - HEADACHE [None]
  - HEART RATE INCREASED [None]
  - OROPHARYNGEAL PAIN [None]
  - PYREXIA [None]
